FAERS Safety Report 5162050-X (Version None)
Quarter: 2006Q4

REPORT INFORMATION
  Report Type: 
  Country: None (occurrence: None)
  Receive Date: 20061121
  Receipt Date: 20061110
  Transmission Date: 20070319
  Serious: Yes (Other)
  Sender: FDA-Public Use
  Company Number: 232139

PATIENT
  Age: 53 Year

DRUGS (1)
  1. MABTHERA [Suspect]
     Indication: NON-HODGKIN'S LYMPHOMA
     Dosage: Q3M, INTRAVENOUS
     Route: 042
     Dates: start: 20060301

REACTIONS (4)
  - APLASTIC ANAEMIA [None]
  - HEPATIC STEATOSIS [None]
  - PLATELET COUNT DECREASED [None]
  - WHITE BLOOD CELL COUNT DECREASED [None]
